FAERS Safety Report 8927586 (Version 1)
Quarter: 2012Q4

REPORT INFORMATION
  Report Type: 
  Country: DE (occurrence: DE)
  Receive Date: 20121127
  Receipt Date: 20121127
  Transmission Date: 20130627
  Serious: Yes (Other)
  Sender: FDA-Public Use
  Company Number: PHHY2012DE098808

PATIENT
  Age: 43 Year
  Sex: Male
  Weight: 88 kg

DRUGS (3)
  1. GILENYA [Suspect]
     Indication: RELAPSING-REMITTING MULTIPLE SCLEROSIS
     Dosage: 0.5 mg, QD
     Route: 048
     Dates: start: 20121004, end: 20121026
  2. VALPROATE [Concomitant]
     Indication: PARTIAL SEIZURES
     Dosage: 1500 mg, QD
     Route: 048
     Dates: start: 20081008
  3. IBUPROFEN [Concomitant]
     Indication: HEADACHE
     Dosage: 400 mg, UNK

REACTIONS (2)
  - Rash [Recovered/Resolved]
  - Pruritus [Recovered/Resolved]
